FAERS Safety Report 18541156 (Version 10)
Quarter: 2023Q1

REPORT INFORMATION
  Report Type: Spontaneous
  Country: US (occurrence: US)
  Receive Date: 20201124
  Receipt Date: 20230329
  Transmission Date: 20230418
  Serious: Yes (Other)
  Sender: FDA-Public Use
  Company Number: US-PFIZER INC-2020402031

PATIENT
  Age: 41 Year
  Sex: Female

DRUGS (2)
  1. SYNAREL [Suspect]
     Active Substance: NAFARELIN ACETATE
     Indication: Endometriosis
     Dosage: 1 DF, 1X/DAY FOR 30 DAYS
     Route: 045
  2. SYNAREL [Suspect]
     Active Substance: NAFARELIN ACETATE
     Dosage: INHALE ONE SPRAY IN EACH NOSTRIL ONCE DAILY
     Route: 045

REACTIONS (8)
  - Brain neoplasm [Unknown]
  - Product container issue [Unknown]
  - Musculoskeletal disorder [Unknown]
  - Nervous system disorder [Unknown]
  - Neuralgia [Unknown]
  - Mental disorder [Unknown]
  - Hypersensitivity [Unknown]
  - Off label use [Unknown]
